FAERS Safety Report 22177552 (Version 1)
Quarter: 2023Q2

REPORT INFORMATION
  Report Type: Spontaneous
  Country: US (occurrence: US)
  Receive Date: 20230405
  Receipt Date: 20230405
  Transmission Date: 20230722
  Serious: No
  Sender: FDA-Public Use
  Company Number: US-CHEMOCENTRYX, INC.-2023USCCXI0941

PATIENT

DRUGS (1)
  1. TAVNEOS [Suspect]
     Active Substance: AVACOPAN
     Indication: Product used for unknown indication
     Dosage: 30 MG, 2X/DAY IN THE MORNING AND BEFORE BEDTIME WITH FOOD
     Route: 048
     Dates: start: 20230228

REACTIONS (5)
  - Insomnia [Unknown]
  - Performance status decreased [Unknown]
  - Head discomfort [Unknown]
  - Headache [Unknown]
  - Unevaluable event [Unknown]
